FAERS Safety Report 16218207 (Version 2)
Quarter: 2019Q3

REPORT INFORMATION
  Report Type: Spontaneous
  Country: BR (occurrence: BR)
  Receive Date: 20190419
  Receipt Date: 20190716
  Transmission Date: 20191004
  Serious: Yes (Death, Hospitalization)
  Sender: FDA-Public Use
  Company Number: BR-ASTRAZENECA-2019SE43615

PATIENT
  Sex: Female

DRUGS (1)
  1. SYMBICORT [Suspect]
     Active Substance: BUDESONIDE\FORMOTEROL FUMARATE DIHYDRATE
     Dosage: 160/4.5 MCG
     Route: 055

REACTIONS (5)
  - Emphysema [Not Recovered/Not Resolved]
  - Dyspnoea [Unknown]
  - Dementia Alzheimer^s type [Fatal]
  - Organ failure [Fatal]
  - Off label use of device [Not Recovered/Not Resolved]
